FAERS Safety Report 6917326-X (Version None)
Quarter: 2010Q3

REPORT INFORMATION
  Report Type: 
  Country: None (occurrence: None)
  Receive Date: 20100810
  Receipt Date: 20091008
  Transmission Date: 20110219
  Serious: No
  Sender: FDA-Public Use
  Company Number: US-PFIZER INC-2009273675

PATIENT
  Sex: Female
  Weight: 65.8 kg

DRUGS (5)
  1. LIPITOR [Suspect]
     Dosage: 40 MG, 1X/DAY
     Route: 048
     Dates: start: 20080601
  2. CYCLOSPORINE [Concomitant]
     Route: 047
  3. ALPRAZOLAM [Concomitant]
     Dosage: UNK
  4. ACETYLSALICYLIC ACID [Concomitant]
     Dosage: 81 MG, 1X/DAY
     Route: 048
  5. MAGNESIUM [Concomitant]
     Indication: FIBROMYALGIA
     Route: 048

REACTIONS (3)
  - ASPARTATE AMINOTRANSFERASE INCREASED [None]
  - FATIGUE [None]
  - MYALGIA [None]
